FAERS Safety Report 4535742-0 (Version None)
Quarter: 2004Q4

REPORT INFORMATION
  Report Type: 
  Country: None (occurrence: None)
  Receive Date: 20041223
  Receipt Date: 20040130
  Transmission Date: 20050328
  Serious: No
  Sender: FDA-Public Use
  Company Number: US-GLAXOSMITHKLINE-A0495940A

PATIENT
  Age: 55 Year
  Sex: Male

DRUGS (2)
  1. FLONASE [Suspect]
     Dosage: 4SPR PER DAY
     Route: 045
  2. FLOVENT [Suspect]
     Dosage: 220MCG TWICE PER DAY
     Route: 055

REACTIONS (1)
  - BLOOD GLUCOSE INCREASED [None]
